FAERS Safety Report 5965356-7 (Version None)
Quarter: 2008Q4

REPORT INFORMATION
  Report Type: 
  Country: None (occurrence: None)
  Receive Date: 20081125
  Receipt Date: 20081114
  Transmission Date: 20090506
  Serious: Yes (Hospitalization, Other)
  Sender: FDA-Public Use
  Company Number: US-AVENTIS-200814642US

PATIENT
  Sex: Female
  Weight: 95.45 kg

DRUGS (10)
  1. KETEK [Suspect]
     Dosage: DOSE: UNK
     Dates: start: 20070118
  2. OFLOXACIN [Suspect]
     Dosage: DOSE: UNK
  3. TYLENOL (CAPLET) [Suspect]
     Dosage: DOSE: UNK
  4. OTC [Suspect]
     Dosage: DOSE: UNK
  5. ROCEPHIN [Concomitant]
     Route: 042
  6. LEVAQUIN [Concomitant]
     Dosage: DOSE: UNK
  7. FLAGYL [Concomitant]
  8. ZOSYN [Concomitant]
  9. MUCINEX [Concomitant]
  10. DILAUDID [Concomitant]

REACTIONS (20)
  - ABDOMINAL PAIN UPPER [None]
  - ANOREXIA [None]
  - ASTHENIA [None]
  - BLOOD ALKALINE PHOSPHATASE INCREASED [None]
  - BLOOD BILIRUBIN INCREASED [None]
  - DIARRHOEA [None]
  - DRUG INEFFECTIVE [None]
  - EOSINOPHILIA [None]
  - GAIT DISTURBANCE [None]
  - HEPATITIS ACUTE [None]
  - HEPATOMEGALY [None]
  - HYPOALBUMINAEMIA [None]
  - LETHARGY [None]
  - LIVER FUNCTION TEST ABNORMAL [None]
  - NAUSEA [None]
  - OCULAR ICTERUS [None]
  - PAIN [None]
  - PYREXIA [None]
  - SWELLING [None]
  - URINARY TRACT INFECTION [None]
